FAERS Safety Report 20690115 (Version 1)
Quarter: 2022Q2

REPORT INFORMATION
  Report Type: Spontaneous
  Country: US (occurrence: US)
  Receive Date: 20220408
  Receipt Date: 20220408
  Transmission Date: 20220721
  Serious: Yes (Life-Threatening, Hospitalization)
  Sender: FDA-Public Use
  Company Number: US-MYLANLABS-2021M1000364

PATIENT
  Age: 47 Year
  Sex: Male

DRUGS (9)
  1. VORICONAZOLE [Suspect]
     Active Substance: VORICONAZOLE
     Indication: Antifungal treatment
     Dosage: 240 MILLIGRAM, BID
     Route: 042
     Dates: start: 2020, end: 2020
  2. EPINEPHRINE [Suspect]
     Active Substance: EPINEPHRINE
     Indication: Septic shock
     Dosage: 0.3 , MICROGRAM PER KILOGRAM PER MINUTE
     Route: 042
     Dates: start: 2020
  3. NOREPINEPHRINE [Suspect]
     Active Substance: NOREPINEPHRINE
     Indication: Septic shock
     Dosage: DOSE: 12 UG/KG/MIN
     Route: 042
     Dates: start: 2020
  4. FUROSEMIDE [Suspect]
     Active Substance: FUROSEMIDE
     Indication: Hyperkalaemia
     Dosage: 80 MILLIGRAM
     Route: 042
     Dates: start: 2020
  5. ALBUTEROL SULFATE [Suspect]
     Active Substance: ALBUTEROL SULFATE
     Indication: Hyperkalaemia
     Dosage: 2.5 MICROGRAM
     Route: 055
     Dates: start: 2020
  6. INSULIN GLARGINE [Suspect]
     Active Substance: INSULIN GLARGINE
     Indication: Hyperkalaemia
     Dosage: UNK, 7 UNITS WITH 50ML OF 50% GLUCOSE
     Route: 042
     Dates: start: 2020
  7. SODIUM POLYSTYRENE SULFONATE [Suspect]
     Active Substance: SODIUM POLYSTYRENE SULFONATE
     Indication: Hyperkalaemia
     Dosage: 60 GRAM
     Route: 054
     Dates: start: 2020
  8. DEXTROSE [Suspect]
     Active Substance: DEXTROSE
     Indication: Hyperkalaemia
     Dosage: 50 MILLILITER,  WITH INSULIN
  9. SODIUM BICARBONATE [Suspect]
     Active Substance: SODIUM BICARBONATE
     Indication: Hyperkalaemia
     Dosage: 50 MILLIEQUIVALENT
     Route: 042
     Dates: start: 2020

REACTIONS (5)
  - Hyperkalaemia [Recovered/Resolved]
  - Adrenal insufficiency [Recovered/Resolved]
  - Hyponatraemia [Recovered/Resolved]
  - Treatment failure [Unknown]
  - Off label use [Unknown]

NARRATIVE: CASE EVENT DATE: 20200101
